FAERS Safety Report 20642957 (Version 1)
Quarter: 2022Q1

REPORT INFORMATION
  Report Type: Spontaneous
  Country: BR (occurrence: BR)
  Receive Date: 20220328
  Receipt Date: 20220328
  Transmission Date: 20220423
  Serious: Yes (Life-Threatening, Hospitalization, Other)
  Sender: FDA-Public Use
  Company Number: BR-Accord-237528

PATIENT
  Age: 52 Year
  Sex: Male

DRUGS (3)
  1. CLOZAPINE [Suspect]
     Active Substance: CLOZAPINE
     Indication: Schizophrenia
     Dosage: REDUCTION TO 500 MG/DAY, 400 MG/DAY,  200 MG/DAY
     Dates: start: 2007, end: 2021
  2. ATENOLOL [Concomitant]
     Active Substance: ATENOLOL
     Indication: Tachycardia
     Dates: start: 202011
  3. HALOPERIDOL [Concomitant]
     Active Substance: HALOPERIDOL
     Indication: Schizophrenia
     Dosage: INCREASE TO 5 MG/DAY, 7.5 MG/DAY

REACTIONS (4)
  - Granulocytopenia [Recovered/Resolved]
  - Thrombocytopenia [Recovered/Resolved]
  - Lymphopenia [Recovered/Resolved]
  - Leukopenia [Recovered/Resolved]

NARRATIVE: CASE EVENT DATE: 20170401
